FAERS Safety Report 6583734-2 (Version None)
Quarter: 2010Q1

REPORT INFORMATION
  Report Type: 
  Country: None (occurrence: None)
  Receive Date: 20100216
  Receipt Date: 20100205
  Transmission Date: 20100710
  Serious: Yes (Hospitalization)
  Sender: FDA-Public Use
  Company Number: FR-ROCHE-681290

PATIENT
  Sex: Female
  Weight: 44 kg

DRUGS (6)
  1. METHOXY POLYETHYLENE GLYCOL-EPOETIN BETA [Suspect]
     Dosage: LAST DOSE PRIOR TO SAE: 13 MARCH 2009
     Route: 042
     Dates: start: 20090422
  2. KARDEGIC [Suspect]
     Indication: DRUG USE FOR UNKNOWN INDICATION
     Route: 065
     Dates: start: 20070424, end: 20091203
  3. LASIX [Concomitant]
     Dates: start: 20070424
  4. AMLOR [Concomitant]
     Dates: start: 20070424
  5. ATENOLOL [Concomitant]
     Dates: start: 20070424
  6. PLAVIX [Concomitant]
     Dates: start: 20080826

REACTIONS (1)
  - HAEMATEMESIS [None]
